FAERS Safety Report 24619288 (Version 5)
Quarter: 2025Q1

REPORT INFORMATION
  Report Type: Spontaneous
  Country: NL (occurrence: NL)
  Receive Date: 20241114
  Receipt Date: 20250228
  Transmission Date: 20250408
  Serious: Yes (Life-Threatening, Hospitalization, Disabling, Other)
  Sender: AUROBINDO
  Company Number: NL-AUROBINDO-AUR-APL-2024-054612

PATIENT
  Age: 79 Year
  Sex: Female

DRUGS (5)
  1. METFORMIN [Suspect]
     Active Substance: METFORMIN HYDROCHLORIDE
     Indication: Type 2 diabetes mellitus
     Dosage: 1 DOSAGE FORM, ONCE A DAY [LINAGLIPTIN/METFORMIN, 2.5/1000 MG, 1 UNIT PER DAY]
     Route: 065
  2. LINAGLIPTIN [Suspect]
     Active Substance: LINAGLIPTIN
     Indication: Type 2 diabetes mellitus
     Dosage: 1 DOSAGE FORM, ONCE A DAY [LINAGLIPTIN/METFORMIN, 2.5/1000 MG, 1 UNIT PER DAY]
     Route: 065
  3. PERINDOPRIL [Concomitant]
     Active Substance: PERINDOPRIL
     Indication: Hypertension
     Dosage: 1 DOSAGE FORM, ONCE A DAY [PERINDOPRIL/AMLODIPINE, 10/5 MG, 1 UNIT, 1 PER DAY]
     Route: 065
  4. AMLODIPINE [Concomitant]
     Active Substance: AMLODIPINE BESYLATE
     Indication: Hypertension
     Dosage: 1 DOSAGE FORM, ONCE A DAY [PERINDOPRIL/AMLODIPINE, 10/5 MG, 1 UNIT, 1 PER DAY]
     Route: 065
  5. GLICLAZIDE [Concomitant]
     Active Substance: GLICLAZIDE
     Indication: Type 2 diabetes mellitus
     Dosage: 60 MILLIGRAM, ONCE A DAY [GLICLAZIDE 60 MG 1 UNIT, 1 PER DAY]
     Route: 065

REACTIONS (4)
  - Blindness [Recovered/Resolved]
  - Lactic acidosis [Recovering/Resolving]
  - Drug level increased [Recovering/Resolving]
  - Acute kidney injury [Unknown]
